FAERS Safety Report 7303586-2 (Version None)
Quarter: 2011Q1

REPORT INFORMATION
  Report Type: 
  Country: None (occurrence: None)
  Receive Date: 20110221
  Receipt Date: 20110217
  Transmission Date: 20110831
  Serious: Yes (Death, Other)
  Sender: FDA-Public Use
  Company Number: GB-CUBIST-2011S1000095

PATIENT
  Age: 88 Year
  Sex: Female
  Weight: 51.3 kg

DRUGS (7)
  1. METRONIDAZOLE [Concomitant]
     Route: 065
     Dates: start: 20100821, end: 20100830
  2. BISOPROLOL [Concomitant]
     Route: 065
     Dates: start: 20100820, end: 20100905
  3. GENTAMICIN [Concomitant]
     Route: 065
     Dates: start: 20100827, end: 20100827
  4. CUBICIN [Suspect]
     Indication: ABDOMINAL WALL ABSCESS
     Route: 065
  5. ASPIRIN [Concomitant]
     Route: 065
     Dates: start: 20100820, end: 20100905
  6. DIGOXIN [Concomitant]
     Route: 065
     Dates: start: 20100820, end: 20100905
  7. ALENDRONIC ACID [Concomitant]
     Route: 065
     Dates: start: 20100820, end: 20100831

REACTIONS (2)
  - CEREBRAL INFARCTION [None]
  - GENERAL PHYSICAL HEALTH DETERIORATION [None]
